FAERS Safety Report 8468782 (Version 10)
Quarter: 2013Q4

REPORT INFORMATION
  Report Type: Spontaneous
  Country: US (occurrence: US)
  Receive Date: 20120321
  Receipt Date: 20131204
  Transmission Date: 20140711
  Serious: Yes (Hospitalization, Disabling, Other)
  Sender: FDA-Public Use
  Company Number: US-ASTRAZENECA-2011SE33568

PATIENT
  Age: 550 Month
  Sex: Female

DRUGS (35)
  1. NEXIUM [Suspect]
     Indication: GASTROOESOPHAGEAL REFLUX DISEASE
     Dosage: DAILY
     Route: 048
     Dates: start: 2003
  2. NEXIUM [Suspect]
     Indication: GASTROOESOPHAGEAL REFLUX DISEASE
     Route: 048
     Dates: start: 2003, end: 2011
  3. NEXIUM [Suspect]
     Indication: GASTROOESOPHAGEAL REFLUX DISEASE
     Route: 048
     Dates: start: 20030606
  4. NEXIUM [Suspect]
     Indication: GASTROOESOPHAGEAL REFLUX DISEASE
     Route: 048
     Dates: start: 20060822
  5. NEXIUM [Suspect]
     Indication: GASTROOESOPHAGEAL REFLUX DISEASE
     Route: 048
     Dates: start: 20061103
  6. NEXIUM [Suspect]
     Indication: GASTROOESOPHAGEAL REFLUX DISEASE
     Route: 048
     Dates: start: 20091120
  7. NEXIUM [Suspect]
     Indication: GASTROOESOPHAGEAL REFLUX DISEASE
     Route: 048
     Dates: start: 20120229
  8. MAXALT [Concomitant]
     Indication: MIGRAINE
     Dosage: 10 MG  1 TABLET AS NEEDED
  9. MAXALT [Concomitant]
     Indication: MIGRAINE
     Dates: start: 20060821
  10. MAXALT [Concomitant]
     Indication: MIGRAINE
     Dates: start: 20120229
  11. RAMIPRIL [Concomitant]
     Indication: HYPERTENSION
  12. RAMIPRIL [Concomitant]
     Indication: HYPERTENSION
     Dates: start: 20060913
  13. RAMIPRIL [Concomitant]
     Indication: HYPERTENSION
     Dates: start: 20060822
  14. RAMIPRIL [Concomitant]
     Indication: HYPERTENSION
     Dates: start: 20120229
  15. RAMIPRIL [Concomitant]
     Indication: HYPERTENSION
  16. RAMIPRIL [Concomitant]
     Indication: HYPERTENSION
     Route: 048
     Dates: start: 20030912
  17. BIOIDENTICAL THYROID [Concomitant]
  18. BIOIDENTICAL THYROID [Concomitant]
     Dates: start: 20120229
  19. BIOIDENTICAL PROGESTERONE [Concomitant]
     Dosage: 100MG 1 EVERY DAY FOR 10 DAYS A MONTH
  20. BIOIDENTICAL PROGESTERONE [Concomitant]
     Dates: start: 20120229
  21. OMEGA 3 FISH OIL [Concomitant]
     Dosage: TWO CAPSULES A DAY
  22. LEVROTHYROXSINE [Concomitant]
     Indication: HYPOTHYROIDISM
     Dates: start: 20091120
  23. VITAMINE D [Concomitant]
  24. VITAMINE C [Concomitant]
  25. MAGNESIUM [Concomitant]
  26. IBUPROFEN [Concomitant]
  27. VITAMIN B 12 [Concomitant]
  28. ECHINECEA [Concomitant]
  29. ATENOLOL [Concomitant]
     Indication: HYPERTENSION
     Dates: start: 20060822
  30. TUMS [Concomitant]
  31. FISH OIL [Concomitant]
  32. V- 6 C [Concomitant]
  33. VICODIN [Concomitant]
     Dosage: 500-5 MG, 1-2, Q4-6 HRS PRN
     Route: 048
  34. TYLENOL WITH CODEINE [Concomitant]
     Route: 048
  35. LOVENOX [Concomitant]
     Dosage: 100 MG/ML

REACTIONS (11)
  - Patella fracture [Unknown]
  - Fall [Unknown]
  - Lower limb fracture [Unknown]
  - Post procedural infection [Unknown]
  - Tibia fracture [Unknown]
  - Iliotibial band syndrome [Unknown]
  - Migraine [Unknown]
  - Osteoporosis [Unknown]
  - Hypoaesthesia [Unknown]
  - Arthralgia [Unknown]
  - Paraesthesia [Unknown]
